FAERS Safety Report 16415374 (Version 1)
Quarter: 2019Q2

REPORT INFORMATION
  Report Type: Spontaneous
  Country: US (occurrence: US)
  Receive Date: 20190611
  Receipt Date: 20190611
  Transmission Date: 20190711
  Serious: Yes (Other)
  Sender: FDA-Public Use
  Company Number: US-SA-2019SA148592

PATIENT
  Age: 47 Year
  Sex: Female
  Weight: 100 kg

DRUGS (8)
  1. GLEEVEC [Concomitant]
     Active Substance: IMATINIB MESYLATE
     Dosage: UNK
     Dates: start: 2004, end: 2007
  2. TAXOTERE [Suspect]
     Active Substance: DOCETAXEL
     Dosage: 150 NG, QOW
     Route: 042
     Dates: start: 20041119, end: 20041119
  3. TASIGNA [Concomitant]
     Active Substance: NILOTINIB
     Dosage: UNK
     Dates: start: 2001
  4. LISINOPRIL. [Concomitant]
     Active Substance: LISINOPRIL
     Dosage: UNK
     Dates: start: 2001
  5. TAXOTERE [Suspect]
     Active Substance: DOCETAXEL
     Indication: BREAST CANCER FEMALE
     Dosage: 150 MG, QOW
     Route: 042
     Dates: start: 20041004, end: 20041004
  6. FELODIPINE. [Concomitant]
     Active Substance: FELODIPINE
     Dosage: UNK
     Dates: start: 2001
  7. ADRIAMYCIN [Concomitant]
     Active Substance: DOXORUBICIN HYDROCHLORIDE
     Dosage: 100 MG, UNK
  8. OMEPRAZOLE. [Concomitant]
     Active Substance: OMEPRAZOLE
     Dosage: UNK
     Dates: start: 2001

REACTIONS (2)
  - Psychological trauma [Unknown]
  - Alopecia [Recovering/Resolving]

NARRATIVE: CASE EVENT DATE: 200505
